FAERS Safety Report 21501778 (Version 3)
Quarter: 2022Q4

REPORT INFORMATION
  Report Type: Report from Study
  Country: CA (occurrence: CA)
  Receive Date: 20221025
  Receipt Date: 20221114
  Transmission Date: 20230112
  Serious: Yes (Other)
  Sender: FDA-Public Use
  Company Number: CA-BRISTOL-MYERS SQUIBB COMPANY-2022-124946

PATIENT
  Age: 78 Year
  Sex: Female
  Weight: 54.9 kg

DRUGS (4)
  1. ABRAXANE [Suspect]
     Active Substance: PACLITAXEL
     Indication: Pancreatic carcinoma metastatic
     Dosage: Q 3 WEEKS
     Route: 042
     Dates: start: 20221014
  2. ABRAXANE [Suspect]
     Active Substance: PACLITAXEL
     Dosage: Q 3 WEEKS
     Route: 042
     Dates: start: 20221104
  3. TYLENOL [Concomitant]
     Active Substance: ACETAMINOPHEN
     Indication: Product used for unknown indication
  4. HYDROMORPHONE HYDROCHLORIDE [Concomitant]
     Active Substance: HYDROMORPHONE HYDROCHLORIDE
     Indication: Product used for unknown indication

REACTIONS (8)
  - Fatigue [Unknown]
  - Biliary obstruction [Unknown]
  - Blood pressure systolic increased [Recovered/Resolved]
  - Treatment noncompliance [Unknown]
  - Lethargy [Unknown]
  - Pain [Unknown]
  - Neuropathy peripheral [Unknown]
  - Off label use [Unknown]

NARRATIVE: CASE EVENT DATE: 20220101
